FAERS Safety Report 19430973 (Version 1)
Quarter: 2021Q2

REPORT INFORMATION
  Report Type: Report from Study
  Country: US (occurrence: US)
  Receive Date: 20210617
  Receipt Date: 20210617
  Transmission Date: 20210717
  Serious: Yes (Other)
  Sender: FDA-Public Use
  Company Number: NVSC2021US128615

PATIENT
  Sex: Female

DRUGS (1)
  1. PIQRAY [Suspect]
     Active Substance: ALPELISIB
     Indication: BREAST CANCER
     Dosage: 300 MG, QD
     Route: 048

REACTIONS (10)
  - Pneumonia [Unknown]
  - Diarrhoea [Unknown]
  - Headache [Unknown]
  - Blood glucose increased [Unknown]
  - Pneumonitis [Unknown]
  - Pulmonary mass [Unknown]
  - Vomiting [Unknown]
  - Dyspnoea [Unknown]
  - Angina pectoris [Unknown]
  - Hypertension [Unknown]
